FAERS Safety Report 24138735 (Version 2)
Quarter: 2024Q3

REPORT INFORMATION
  Report Type: Report from Study
  Country: US (occurrence: US)
  Receive Date: 20240725
  Receipt Date: 20240926
  Transmission Date: 20241017
  Serious: Yes (Hospitalization, Other)
  Sender: ACADIA PHARMACEUTICALS
  Company Number: US-ACADIA PHARMACEUTICALS INC.-ACA-2024-TRF-003115

PATIENT
  Sex: Female

DRUGS (3)
  1. DAYBUE [Suspect]
     Active Substance: TROFINETIDE
     Indication: Rett syndrome
     Dosage: 40 MILLILITER, BID
     Dates: end: 20240527
  2. DAYBUE [Suspect]
     Active Substance: TROFINETIDE
     Dosage: 40 MILLILITER, BID
     Dates: start: 20240701
  3. DAYBUE [Suspect]
     Active Substance: TROFINETIDE
     Dosage: 40 MILLILITER, BID

REACTIONS (8)
  - Metapneumovirus infection [Unknown]
  - Mechanical ventilation [Unknown]
  - Septic shock [Unknown]
  - Respiratory failure [Unknown]
  - Pneumonia aspiration [Unknown]
  - Weight decreased [Unknown]
  - Vomiting [Unknown]
  - Bacterial infection [Recovered/Resolved]
